FAERS Safety Report 6083606-6 (Version None)
Quarter: 2009Q1

REPORT INFORMATION
  Report Type: 
  Country: None (occurrence: None)
  Receive Date: 20090219
  Receipt Date: 20090218
  Transmission Date: 20090719
  Serious: Yes (Hospitalization)
  Sender: FDA-Public Use
  Company Number: US-BRISTOL-MYERS SQUIBB COMPANY-14457568

PATIENT
  Age: 80 Year
  Sex: Male
  Weight: 93 kg

DRUGS (4)
  1. ERBITUX [Suspect]
     Indication: OESOPHAGEAL CARCINOMA
     Dosage: START OF FIRST COURSE:02DEC08 LAST DOSE-2466MG ON 23-DEC-2008
     Dates: start: 20081202, end: 20081202
  2. TAXOL [Suspect]
     Indication: OESOPHAGEAL CARCINOMA
     Dosage: START OF FIRST COURSE:02DEC08 LAST DOSE-424MG ON 23-DEC-2008
     Dates: start: 20081202, end: 20081202
  3. CISPLATIN [Suspect]
     Indication: OESOPHAGEAL CARCINOMA
     Dosage: START OF FIRST COURSE:02DEC08 LAST DOSE-214MG ON 23-DEC-2008
     Dates: start: 20081202, end: 20081202
  4. RADIATION THERAPY [Suspect]
     Indication: OESOPHAGEAL CARCINOMA
     Dosage: 1 DF=2880CGY(23.12.08),PT.RECEIVED 3870 GY ON 31.12.2008(TO DATE);NO OF FRAC:28,
     Dates: start: 20081202

REACTIONS (5)
  - DEHYDRATION [None]
  - HYPONATRAEMIA [None]
  - PERIPHERAL MOTOR NEUROPATHY [None]
  - WHITE BLOOD CELL COUNT DECREASED [None]
  - WOUND COMPLICATION [None]
